FAERS Safety Report 24186057 (Version 2)
Quarter: 2024Q3

REPORT INFORMATION
  Report Type: Spontaneous
  Country: US (occurrence: US)
  Receive Date: 20240807
  Receipt Date: 20240809
  Transmission Date: 20241016
  Serious: No
  Sender: NOVARTIS
  Company Number: US-HALEON-2190792

PATIENT

DRUGS (1)
  1. LAMISIL [Suspect]
     Active Substance: TERBINAFINE HYDROCHLORIDE
     Indication: Product used for unknown indication
     Dosage: UNK, TOPICAL, LAMISIL AT ATHLETES FOOT #1) TOPICAL SPRAY 125ML, CUT SPRAY SOLUTION
     Route: 065

REACTIONS (1)
  - Drug ineffective [Unknown]
